FAERS Safety Report 6608493-6 (Version None)
Quarter: 2010Q1

REPORT INFORMATION
  Report Type: 
  Country: None (occurrence: None)
  Receive Date: 20100301
  Receipt Date: 20100225
  Transmission Date: 20100710
  Serious: Yes (Hospitalization, Disabling)
  Sender: FDA-Public Use
  Company Number: US-MERCK-1001USA03412

PATIENT
  Age: 85 Year
  Sex: Female

DRUGS (6)
  1. COSOPT [Suspect]
     Indication: OPEN ANGLE GLAUCOMA
     Route: 047
     Dates: start: 20050624, end: 20100129
  2. AZOPT [Concomitant]
     Route: 065
     Dates: start: 20010801, end: 20050601
  3. HYDROCHLOROTHIAZIDE [Concomitant]
     Indication: HYPERTENSION
     Route: 065
  4. LISINOPRIL [Concomitant]
     Indication: HYPERTENSION
     Route: 065
  5. DORZOLAMIDE HYDROCHLORIDE AND TIMOLOL MALEATE [Suspect]
     Indication: OPEN ANGLE GLAUCOMA
     Route: 047
     Dates: start: 20090401
  6. BETOPTIC [Suspect]
     Route: 065
     Dates: start: 20100129

REACTIONS (12)
  - CEREBELLAR TUMOUR [None]
  - CEREBROVASCULAR ACCIDENT [None]
  - CONJUNCTIVAL HYPERAEMIA [None]
  - EYE DISORDER [None]
  - EYE PAIN [None]
  - FACE INJURY [None]
  - FALL [None]
  - GLAUCOMA [None]
  - KERATITIS [None]
  - OCULAR HYPERAEMIA [None]
  - PUNCTATE KERATITIS [None]
  - VISION BLURRED [None]
